FAERS Safety Report 12335665 (Version 1)
Quarter: 2016Q2

REPORT INFORMATION
  Report Type: Spontaneous
  Country: CA (occurrence: CA)
  Receive Date: 20160505
  Receipt Date: 20160505
  Transmission Date: 20160815
  Serious: Yes (Other)
  Sender: FDA-Public Use
  Company Number: CA-CIPLA LTD.-2016CA04388

PATIENT

DRUGS (4)
  1. OLAPARIB [Interacting]
     Active Substance: OLAPARIB
     Indication: COLORECTAL CANCER
     Dosage: 50 MG, ON DAY 1 TO 5, OF 14-DAY CYCLE
     Route: 048
  2. OXALIPLATIN. [Suspect]
     Active Substance: OXALIPLATIN
     Indication: COLORECTAL CANCER
     Dosage: UNK, PRIOR THERAPY
     Route: 065
  3. IRINOTECAN [Suspect]
     Active Substance: IRINOTECAN
     Indication: COLORECTAL CANCER
     Dosage: UNK, PRIOR THERAPY
     Route: 065
  4. IRINOTECAN [Interacting]
     Active Substance: IRINOTECAN
     Dosage: UNK, ON DAY 3 OF 14-DAY CYCLE
     Route: 042

REACTIONS (2)
  - Hyperkalaemia [Unknown]
  - Drug interaction [Unknown]
